FAERS Safety Report 19414595 (Version 2)
Quarter: 2021Q2

REPORT INFORMATION
  Report Type: Other
  Country: CA (occurrence: CA)
  Receive Date: 20210615
  Receipt Date: 20210615
  Transmission Date: 20210717
  Serious: Yes (Other)
  Sender: FDA-Public Use
  Company Number: CA-APOTEX-2021AP014008

PATIENT
  Age: 73 Year
  Sex: Female
  Weight: 67 kg

DRUGS (2)
  1. ROSUVASTATIN. [Suspect]
     Active Substance: ROSUVASTATIN
     Indication: BLOOD CHOLESTEROL
     Dosage: 10 MILLIGRAM, QD
     Route: 048
  2. MONOCOR [Concomitant]
     Active Substance: BISOPROLOL FUMARATE
     Indication: PRODUCT USED FOR UNKNOWN INDICATION
     Dosage: UNK MILLIGRAM
     Route: 065

REACTIONS (9)
  - Blood cholesterol increased [Unknown]
  - Chest discomfort [Unknown]
  - Palpitations [Unknown]
  - Fatigue [Unknown]
  - Nausea [Unknown]
  - Bradycardia [Unknown]
  - Blood lactate dehydrogenase increased [Unknown]
  - Dizziness [Unknown]
  - Tachycardia [Unknown]
